FAERS Safety Report 22059923 (Version 1)
Quarter: 2023Q1

REPORT INFORMATION
  Report Type: Spontaneous
  Country: AR (occurrence: AR)
  Receive Date: 20230303
  Receipt Date: 20230303
  Transmission Date: 20230418
  Serious: No
  Sender: FDA-Public Use
  Company Number: AR-PFIZER INC-PV202300039000

PATIENT
  Age: 13 Year
  Sex: Male

DRUGS (1)
  1. GENOTROPIN [Suspect]
     Active Substance: SOMATROPIN
     Indication: Short stature
     Dosage: 1.5 TO 2 MG 7 TIMES PER WEEK
     Dates: start: 20170312

REACTIONS (4)
  - Prescription drug used without a prescription [Unknown]
  - Device breakage [Unknown]
  - Device mechanical issue [Unknown]
  - Device use issue [Unknown]

NARRATIVE: CASE EVENT DATE: 20230226
